FAERS Safety Report 7016411-4 (Version None)
Quarter: 2010Q3

REPORT INFORMATION
  Report Type: 
  Country: None (occurrence: None)
  Receive Date: 20100927
  Receipt Date: 20100916
  Transmission Date: 20110219
  Serious: Yes (Hospitalization)
  Sender: FDA-Public Use
  Company Number: PHHY2010US60381

PATIENT
  Sex: Female

DRUGS (1)
  1. EXJADE [Suspect]
     Indication: SICKLE CELL ANAEMIA
     Dosage: 750 MG DAILY
     Route: 048
     Dates: start: 20100831, end: 20100831

REACTIONS (2)
  - FULL BLOOD COUNT DECREASED [None]
  - SICKLE CELL ANAEMIA [None]
